FAERS Safety Report 22254784 (Version 1)
Quarter: 2023Q2

REPORT INFORMATION
  Report Type: Report from Study
  Country: US (occurrence: US)
  Receive Date: 20230426
  Receipt Date: 20230426
  Transmission Date: 20230722
  Serious: Yes (Other)
  Sender: FDA-Public Use
  Company Number: US-MYLANLABS-2023M1043801

PATIENT
  Age: 10 Year
  Sex: Male

DRUGS (6)
  1. ETOPOSIDE [Suspect]
     Active Substance: ETOPOSIDE
     Indication: Acute lymphocytic leukaemia
     Dosage: 100 MILLIGRAM/SQ. METER, CYCLE, ADMINISTERED ONCE DAILY ON DAYS 1-5 OF EACH ....
     Route: 042
  2. METHOTREXATE [Suspect]
     Active Substance: METHOTREXATE
     Indication: Acute lymphocytic leukaemia
     Dosage: UNK, CYCLE, ADMINISTERED ONCE VIA LUMBAR PUNCTURE BETWEEN DAY -6 TO DAY 1 OF....
     Route: 037
  3. TEMSIROLIMUS [Suspect]
     Active Substance: TEMSIROLIMUS
     Indication: Acute lymphocytic leukaemia
     Dosage: 7.5 MILLIGRAM/SQ. METER, CYCLE,INITIAL (DL1) ; ADMINISTERED ON DAY 1 AND DAY 8 OF....
     Route: 042
  4. TEMSIROLIMUS [Suspect]
     Active Substance: TEMSIROLIMUS
     Dosage: 10 MILLIGRAM/SQ. METER, CYCLE,DL2; ADMINISTERED ON DAY 1 AND DAY 8....
     Route: 042
  5. TEMSIROLIMUS [Suspect]
     Active Substance: TEMSIROLIMUS
     Dosage: 15 MILLIGRAM/SQ. METER, CYCLE, DL3; ADMINISTERED ON DAY 1 AND DAY 8 OF ....
     Route: 042
  6. CYCLOPHOSPHAMIDE [Suspect]
     Active Substance: CYCLOPHOSPHAMIDE
     Indication: Acute lymphocytic leukaemia
     Dosage: 440 MILLIGRAM/SQ. METER, CYCLE, ADMINISTERED ONCE DAILY ON DAYS 1-5 OF EACH?.
     Route: 042

REACTIONS (4)
  - Pneumonitis [Unknown]
  - Pleural effusion [Unknown]
  - Pericardial effusion [Unknown]
  - Off label use [Unknown]
